FAERS Safety Report 11785649 (Version 1)
Quarter: 2015Q4

REPORT INFORMATION
  Report Type: Spontaneous
  Country: CA (occurrence: CA)
  Receive Date: 20151130
  Receipt Date: 20151130
  Transmission Date: 20160305
  Serious: Yes (Hospitalization)
  Sender: FDA-Public Use
  Company Number: CA-BAYER-2015-470414

PATIENT
  Sex: Female

DRUGS (1)
  1. YAZ [Suspect]
     Active Substance: DROSPIRENONE\ETHINYL ESTRADIOL
     Indication: ACNE
     Dosage: UNK
     Route: 048
     Dates: start: 20130610, end: 20130706

REACTIONS (12)
  - Ischaemic stroke [None]
  - Neck pain [None]
  - Brain injury [None]
  - Agraphia [None]
  - Apraxia [None]
  - Hearing impaired [None]
  - Headache [None]
  - Amnesia [None]
  - Aphasia [None]
  - Motor dysfunction [None]
  - Sensory loss [None]
  - Memory impairment [None]

NARRATIVE: CASE EVENT DATE: 201307
